FAERS Safety Report 24547477 (Version 1)
Quarter: 2024Q4

REPORT INFORMATION
  Report Type: Spontaneous
  Country: IT (occurrence: IT)
  Receive Date: 20241025
  Receipt Date: 20241025
  Transmission Date: 20250114
  Serious: Yes (Hospitalization, Other)
  Sender: CELLTRION
  Company Number: IT-FreseniusKabi-FK202406676

PATIENT

DRUGS (4)
  1. ADALIMUMAB [Suspect]
     Active Substance: ADALIMUMAB
     Indication: Crohn^s disease
     Dosage: DISCONTINUED BEFORE 1 MONTH OF ADMISSION DUE TO LOSS OF SECONDARY RESPONSE
     Route: 058
  2. ADALIMUMAB [Suspect]
     Active Substance: ADALIMUMAB
     Dosage: RESTARTED AGAIN AFTER 2 MONTHS OF ADMISSION
     Route: 058
  3. USTEKINUMAB [Suspect]
     Active Substance: USTEKINUMAB
     Indication: Crohn^s disease
     Dosage: FORM OF ADMIN: INJECTION, 3 CONSECUTIVE WEEKLY SUBCUTANEOUS DOSES OF 2MG/KG USTEKINUMAB, EQUIVALENT
  4. METHOTREXATE [Suspect]
     Active Substance: METHOTREXATE
     Indication: Crohn^s disease

REACTIONS (3)
  - Disseminated tuberculosis [Recovered/Resolved]
  - Poncet^s disease [Recovered/Resolved]
  - Treatment failure [Unknown]
